FAERS Safety Report 22220196 (Version 1)
Quarter: 2023Q2

REPORT INFORMATION
  Report Type: Spontaneous
  Country: US (occurrence: None)
  Receive Date: 20230414
  Receipt Date: 20230414
  Transmission Date: 20230722
  Serious: Yes (Hospitalization)
  Sender: FDA-Public Use
  Company Number: None

PATIENT
  Sex: Female

DRUGS (3)
  1. TRIUMEQ [Suspect]
     Active Substance: ABACAVIR SULFATE\DOLUTEGRAVIR SODIUM\LAMIVUDINE
     Indication: HIV infection
     Dosage: 600/50/300  ONCE DAILY PO? ?
     Route: 048
     Dates: start: 201910
  2. AZITHROMYCIN ANHYDROUS [Suspect]
     Active Substance: AZITHROMYCIN ANHYDROUS
     Indication: HIV infection
     Dosage: TAKE 2 TABLETS BY MOUTH ON DAY 1, THEN 1 TABLET DAILY FOR 4 DAYS THEREAFTER. ??
     Route: 048
     Dates: start: 202304, end: 202304
  3. AZITHROMYCIN ANHYDROUS [Suspect]
     Active Substance: AZITHROMYCIN ANHYDROUS
     Dosage: FREQUENCY : DAILY;?
     Route: 048
     Dates: start: 202304, end: 202304

REACTIONS (1)
  - Depression [None]
